FAERS Safety Report 15731661 (Version 1)
Quarter: 2018Q4

REPORT INFORMATION
  Report Type: Spontaneous
  Country: US (occurrence: US)
  Receive Date: 20181217
  Receipt Date: 20181217
  Transmission Date: 20190205
  Serious: Yes (Hospitalization)
  Sender: FDA-Public Use
  Company Number: None

PATIENT
  Age: 51 Year
  Sex: Male

DRUGS (9)
  1. TRAMADOL 50MG [Concomitant]
     Active Substance: TRAMADOL
     Dates: start: 20180204, end: 20180906
  2. FUROSEMIDE 40MG [Concomitant]
     Active Substance: FUROSEMIDE
     Dates: start: 20180204
  3. CARVEDILOL 25MG [Concomitant]
     Active Substance: CARVEDILOL
     Dates: start: 20171205
  4. ISOSORBIDE MONONITRITE 60MG ER [Concomitant]
     Dates: start: 20171205
  5. VELTASSA [Suspect]
     Active Substance: PATIROMER
     Indication: HYPERKALAEMIA
     Route: 048
     Dates: start: 20180928
  6. FERROUS SULFATE 325MG [Concomitant]
     Active Substance: FERROUS SULFATE
     Dates: start: 20180423
  7. NICOTINE 21MG TD PATCH [Concomitant]
     Dates: start: 20180205
  8. ATORVASTATIN 10MG [Concomitant]
     Active Substance: ATORVASTATIN
     Dates: start: 20180313, end: 20181013
  9. HYDRALAZINE 100MG [Concomitant]
     Active Substance: HYDRALAZINE HYDROCHLORIDE
     Dates: start: 20171205

REACTIONS (2)
  - Dyspnoea [None]
  - Pulmonary oedema [None]

NARRATIVE: CASE EVENT DATE: 20181124
